FAERS Safety Report 7730628-2 (Version None)
Quarter: 2011Q3

REPORT INFORMATION
  Report Type: 
  Country: None (occurrence: None)
  Receive Date: 20110906
  Receipt Date: 20110825
  Transmission Date: 20111222
  Serious: Yes (Hospitalization)
  Sender: FDA-Public Use
  Company Number: HR-ASTRAZENECA-2011SE51286

PATIENT
  Age: 79 Year
  Sex: Male

DRUGS (10)
  1. CRESTOR [Suspect]
     Indication: HYPERLIPIDAEMIA
     Route: 048
     Dates: start: 20110310, end: 20110501
  2. CARVELOL [Concomitant]
     Route: 048
  3. INDAPAMIDE [Concomitant]
     Route: 048
  4. LANITOP [Concomitant]
  5. RITUXIMAB [Concomitant]
  6. ALLOPURINOL [Concomitant]
     Route: 048
  7. AMARYL [Concomitant]
     Route: 048
  8. LEUKERAN [Concomitant]
  9. PEPTORAN [Concomitant]
     Route: 048
  10. RAMIPRIL [Concomitant]
     Route: 048

REACTIONS (1)
  - HEPATIC LESION [None]
